FAERS Safety Report 8076254-X (Version None)
Quarter: 2012Q1

REPORT INFORMATION
  Report Type: 
  Country: None (occurrence: None)
  Receive Date: 20120127
  Receipt Date: 20120124
  Transmission Date: 20120608
  Serious: Yes (Other)
  Sender: FDA-Public Use
  Company Number: US-BAYER-2011-120807

PATIENT
  Age: 22 Year
  Sex: Female
  Weight: 136.51 kg

DRUGS (1)
  1. MIRENA [Suspect]
     Indication: CONTRACEPTION
     Dosage: UNK
     Route: 015
     Dates: start: 20111104, end: 20111205

REACTIONS (5)
  - PAIN [None]
  - HAEMORRHAGE [None]
  - DEVICE COMPONENT ISSUE [None]
  - ABDOMINAL PAIN LOWER [None]
  - DEVICE DISLOCATION [None]
